FAERS Safety Report 17505052 (Version 2)
Quarter: 2020Q1

REPORT INFORMATION
  Report Type: Spontaneous
  Country: ES (occurrence: ES)
  Receive Date: 20200306
  Receipt Date: 20200315
  Transmission Date: 20200409
  Serious: Yes (Other)
  Sender: FDA-Public Use
  Company Number: ES-ABBVIE-20K-144-3304030-00

PATIENT
  Age: 38 Year
  Sex: Female

DRUGS (6)
  1. VENCLYXTO [Suspect]
     Active Substance: VENETOCLAX
     Indication: ACUTE MYELOID LEUKAEMIA
     Route: 048
     Dates: start: 20200228, end: 20200301
  2. MICAFUNGIN. [Concomitant]
     Active Substance: MICAFUNGIN SODIUM
     Indication: PRODUCT USED FOR UNKNOWN INDICATION
     Dates: start: 2020
  3. POSACONAZOLE [Concomitant]
     Active Substance: POSACONAZOLE
     Indication: PRODUCT USED FOR UNKNOWN INDICATION
     Dates: start: 202002
  4. VENCLYXTO [Suspect]
     Active Substance: VENETOCLAX
     Route: 048
     Dates: start: 2020
  5. VENCLYXTO [Suspect]
     Active Substance: VENETOCLAX
     Route: 048
     Dates: start: 20200302, end: 2020
  6. VIDAZA [Suspect]
     Active Substance: AZACITIDINE
     Indication: ACUTE MYELOID LEUKAEMIA
     Route: 065
     Dates: start: 202002

REACTIONS (9)
  - Blast cell count decreased [Recovering/Resolving]
  - Differentiation syndrome [Recovering/Resolving]
  - Cytokine release syndrome [Recovering/Resolving]
  - Off label use [Unknown]
  - Pleural effusion [Recovering/Resolving]
  - Capillary leak syndrome [Recovering/Resolving]
  - Coagulopathy [Recovering/Resolving]
  - Blood lactate dehydrogenase increased [Unknown]
  - Weight increased [Unknown]

NARRATIVE: CASE EVENT DATE: 2020
